FAERS Safety Report 4688219-6 (Version None)
Quarter: 2005Q2

REPORT INFORMATION
  Report Type: 
  Country: None (occurrence: None)
  Receive Date: 20050610
  Receipt Date: 20050602
  Transmission Date: 20051028
  Serious: Yes (Hospitalization)
  Sender: FDA-Public Use
  Company Number: AU-ABBOTT-05P-008-0302253-00

PATIENT
  Sex: Male

DRUGS (3)
  1. EPILIM [Suspect]
     Route: 065
     Dates: start: 19970803
  2. EPILIM [Suspect]
  3. CLOZAPINE [Suspect]
     Indication: SUICIDE ATTEMPT
     Route: 048
     Dates: start: 19970803, end: 19970803

REACTIONS (2)
  - OVERDOSE [None]
  - SUICIDE ATTEMPT [None]
